FAERS Safety Report 4560948-4 (Version None)
Quarter: 2005Q1

REPORT INFORMATION
  Report Type: 
  Country: None (occurrence: None)
  Receive Date: 20050126
  Receipt Date: 20040301
  Transmission Date: 20050727
  Serious: No
  Sender: FDA-Public Use
  Company Number: US-BRISTOL-MYERS SQUIBB COMPANY-12521555

PATIENT
  Age: 64 Year
  Sex: Female
  Weight: 91 kg

DRUGS (8)
  1. GLUCOPHAGE [Suspect]
     Indication: DIABETES MELLITUS
     Dosage: DURATION OF THERAPY:  ^2-3 YEARS^
     Route: 048
  2. PRAVACHOL [Concomitant]
  3. AVANDIA [Concomitant]
  4. MONOPRIL [Concomitant]
  5. ASPIRIN [Concomitant]
  6. INSULIN [Concomitant]
  7. VERTIX [Concomitant]
  8. SINGULAIR [Concomitant]

REACTIONS (2)
  - COUGH [None]
  - DYSURIA [None]
